FAERS Safety Report 10740052 (Version 1)
Quarter: 2015Q1

REPORT INFORMATION
  Report Type: Spontaneous
  Country: US (occurrence: US)
  Receive Date: 20150127
  Receipt Date: 20150127
  Transmission Date: 20150721
  Serious: Yes (Death)
  Sender: FDA-Public Use
  Company Number: US-009507513-1501USA007655

PATIENT
  Age: 42 Year
  Sex: Female

DRUGS (4)
  1. METHADONE HYDROCHLORIDE. [Suspect]
     Active Substance: METHADONE HYDROCHLORIDE
  2. ORGATRAX [Suspect]
     Active Substance: HYDROXYZINE HYDROCHLORIDE
  3. CYCLOBENZAPRINE HYDROCHLORIDE. [Suspect]
     Active Substance: CYCLOBENZAPRINE HYDROCHLORIDE
  4. COCAINE [Suspect]
     Active Substance: COCAINE

REACTIONS (2)
  - Toxicity to various agents [Fatal]
  - Drug administration error [Fatal]
